FAERS Safety Report 5801240-7 (Version None)
Quarter: 2008Q3

REPORT INFORMATION
  Report Type: 
  Country: None (occurrence: None)
  Receive Date: 20080707
  Receipt Date: 20080625
  Transmission Date: 20090109
  Serious: Yes (Death)
  Sender: FDA-Public Use
  Company Number: JRFBEL1999000084

PATIENT
  Sex: Female

DRUGS (7)
  1. DURAGESIC-100 [Suspect]
     Route: 062
     Dates: start: 19971003
  2. DURAGESIC-100 [Suspect]
     Indication: PAIN
     Route: 062
     Dates: start: 19971003
  3. BENADRYL [Concomitant]
     Indication: DRUG USE FOR UNKNOWN INDICATION
     Route: 041
     Dates: start: 19980217
  4. GRAVOL TAB [Concomitant]
     Indication: DRUG USE FOR UNKNOWN INDICATION
     Route: 041
     Dates: start: 19980217
  5. MORPHINE [Concomitant]
     Indication: PAIN
     Route: 041
     Dates: start: 19980217
  6. HEPARIN [Concomitant]
     Indication: PULMONARY EMBOLISM
     Dates: start: 19980114
  7. WARFARIN SODIUM [Concomitant]
     Indication: PROPHYLAXIS
     Dates: start: 19980114

REACTIONS (3)
  - CONDITION AGGRAVATED [None]
  - DRUG LEVEL INCREASED [None]
  - PULMONARY EMBOLISM [None]
